FAERS Safety Report 9858477 (Version 1)
Quarter: 2014Q1

REPORT INFORMATION
  Report Type: Spontaneous
  Country: US (occurrence: None)
  Receive Date: 20140130
  Receipt Date: 20140130
  Transmission Date: 20141002
  Serious: Yes (Other)
  Sender: FDA-Public Use
  Company Number: None

PATIENT
  Sex: Male
  Weight: 104.1 kg

DRUGS (1)
  1. GLEEVEC [Suspect]
     Route: 048
     Dates: start: 20131213

REACTIONS (1)
  - Pericardial effusion [None]
